FAERS Safety Report 8739880 (Version 2)
Quarter: 2013Q4

REPORT INFORMATION
  Report Type: Spontaneous
  Country: US (occurrence: US)
  Receive Date: 20120823
  Receipt Date: 20131101
  Transmission Date: 20140711
  Serious: No
  Sender: FDA-Public Use
  Company Number: US-009507513-1208USA002035

PATIENT
  Sex: Female

DRUGS (7)
  1. VICTRELIS [Suspect]
     Indication: HEPATITIS C
     Dosage: 800 MG, TID
     Route: 048
     Dates: start: 20120705
  2. RIBASPHERE [Concomitant]
     Indication: HEPATITIS C
  3. PEGASYS [Concomitant]
     Indication: HEPATITIS C
  4. TRAMADOL HYDROCHLORIDE [Concomitant]
  5. TYLENOL [Concomitant]
  6. PRILOSEC [Concomitant]
  7. OMEGA-3 MARINE TRIGLYCERIDES [Concomitant]

REACTIONS (1)
  - White blood cell count abnormal [Unknown]
